FAERS Safety Report 7816308-3 (Version None)
Quarter: 2011Q4

REPORT INFORMATION
  Report Type: 
  Country: None (occurrence: None)
  Receive Date: 20111017
  Receipt Date: 20111012
  Transmission Date: 20120403
  Serious: Yes (Hospitalization)
  Sender: FDA-Public Use
  Company Number: AU-BRISTOL-MYERS SQUIBB COMPANY-16157935

PATIENT
  Age: 56 Year
  Sex: Female

DRUGS (3)
  1. ARIPIPRAZOLE [Suspect]
     Indication: PSYCHOTIC DISORDER
  2. VALPROIC ACID [Suspect]
     Indication: PSYCHOTIC DISORDER
  3. FLUPENTIXOL [Suspect]
     Indication: PSYCHOTIC DISORDER

REACTIONS (2)
  - HYPONATRAEMIA [None]
  - MENTAL IMPAIRMENT [None]
